FAERS Safety Report 6266910-8 (Version None)
Quarter: 2009Q3

REPORT INFORMATION
  Report Type: 
  Country: None (occurrence: None)
  Receive Date: 20090714
  Receipt Date: 20090706
  Transmission Date: 20100115
  Serious: Yes (Other)
  Sender: FDA-Public Use
  Company Number: PHHY2009CA28503

PATIENT
  Sex: Male

DRUGS (3)
  1. RASILEZ [Suspect]
     Indication: HYPERTENSION
     Dosage: UNK
  2. COVERSYL [Concomitant]
     Indication: HYPERTENSION
  3. ADALAT [Concomitant]
     Indication: HYPERTENSION

REACTIONS (1)
  - TREMOR [None]
